FAERS Safety Report 9610874 (Version 1)
Quarter: 2013Q4

REPORT INFORMATION
  Report Type: Report from Study
  Country: CA (occurrence: CA)
  Receive Date: 20131009
  Receipt Date: 20131009
  Transmission Date: 20140711
  Serious: Yes (Hospitalization)
  Sender: FDA-Public Use
  Company Number: CA-ROCHE-1284195

PATIENT
  Age: 42 Year
  Sex: Female

DRUGS (9)
  1. BEVACIZUMAB [Suspect]
     Indication: PRODUCT USED FOR UNKNOWN INDICATION
     Route: 042
  2. TRASTUZUMAB [Suspect]
     Indication: PRODUCT USED FOR UNKNOWN INDICATION
     Route: 042
  3. CARBOPLATIN [Suspect]
     Indication: PRODUCT USED FOR UNKNOWN INDICATION
     Route: 042
  4. DOCETAXEL [Suspect]
     Indication: PRODUCT USED FOR UNKNOWN INDICATION
     Route: 042
  5. ZOFRAN [Concomitant]
  6. DEXAMETHASONE [Concomitant]
  7. HYDROCORTISONE [Concomitant]
  8. NYSTATIN [Concomitant]
  9. STEMETIL [Concomitant]

REACTIONS (8)
  - Blood pressure increased [Unknown]
  - Cough [Unknown]
  - Diarrhoea [Unknown]
  - Dysuria [Unknown]
  - Heart rate increased [Unknown]
  - Mucosal inflammation [Unknown]
  - Oral candidiasis [Unknown]
  - Urinary tract infection [Unknown]
